FAERS Safety Report 7636825-9 (Version None)
Quarter: 2011Q3

REPORT INFORMATION
  Report Type: 
  Country: None (occurrence: None)
  Receive Date: 20110726
  Receipt Date: 20110711
  Transmission Date: 20111222
  Serious: Yes (Congenital Anomaly, Other)
  Sender: FDA-Public Use
  Company Number: IN-WATSON-2011-11077

PATIENT
  Age: 2 Month
  Sex: Male

DRUGS (1)
  1. VALPROATE SODIUM [Suspect]
     Indication: MATERNAL EXPOSURE DURING PREGNANCY
     Route: 064

REACTIONS (14)
  - FOETAL GROWTH RESTRICTION [None]
  - GROWTH RETARDATION [None]
  - FOETAL ANTICONVULSANT SYNDROME [None]
  - HAND DEFORMITY [None]
  - SKIN DISORDER [None]
  - PULMONARY HYPERTENSION [None]
  - MADAROSIS [None]
  - CLEFT PALATE [None]
  - FOOT DEFORMITY [None]
  - INGUINAL HERNIA [None]
  - LOW SET EARS [None]
  - NOSE DEFORMITY [None]
  - CONGENITAL ORAL MALFORMATION [None]
  - ECHOCARDIOGRAM ABNORMAL [None]
